FAERS Safety Report 12538536 (Version 3)
Quarter: 2016Q3

REPORT INFORMATION
  Report Type: Spontaneous
  Country: US (occurrence: US)
  Receive Date: 20160708
  Receipt Date: 20160822
  Transmission Date: 20161109
  Serious: No
  Sender: FDA-Public Use
  Company Number: PHEH2016US016458

PATIENT
  Sex: Female

DRUGS (3)
  1. MULTI-B                            /06345501/ [Concomitant]
     Indication: ABDOMINAL DISCOMFORT
     Route: 065
  2. AMLODIPINE [Concomitant]
     Active Substance: AMLODIPINE BESYLATE
     Indication: PRODUCT USED FOR UNKNOWN INDICATION
     Route: 065
  3. DIOVAN [Suspect]
     Active Substance: VALSARTAN
     Indication: PRODUCT USED FOR UNKNOWN INDICATION
     Dosage: 80 MG, QD
     Route: 065

REACTIONS (9)
  - Nervousness [Unknown]
  - Dizziness [Recovering/Resolving]
  - Tremor [Unknown]
  - Influenza [Unknown]
  - Cough [Unknown]
  - Feeling abnormal [Unknown]
  - Pyrexia [Unknown]
  - Muscular weakness [Unknown]
  - Product colour issue [Unknown]
